FAERS Safety Report 7902402-5 (Version None)
Quarter: 2011Q4

REPORT INFORMATION
  Report Type: 
  Country: None (occurrence: None)
  Receive Date: 20111108
  Receipt Date: 20111027
  Transmission Date: 20120403
  Serious: Yes (Hospitalization, Other)
  Sender: FDA-Public Use
  Company Number: PHHY2011FR85823

PATIENT
  Sex: Female

DRUGS (10)
  1. FEMARA [Suspect]
     Dosage: UNK
     Dates: start: 20010101, end: 20090101
  2. LAPATINIB [Concomitant]
     Dosage: 1500 MG, UNK
     Dates: start: 20110501, end: 20110806
  3. AVASTIN [Concomitant]
     Indication: DISEASE PROGRESSION
     Dosage: 7 COURSES
     Dates: start: 20091001
  4. TAXOL [Concomitant]
     Indication: DISEASE PROGRESSION
     Dosage: UNK
     Dates: start: 20091001
  5. ZYRTEC [Concomitant]
  6. CORTICOSTEROIDS [Concomitant]
  7. FEMARA [Suspect]
     Dosage: 2.5 MG DAILY
     Dates: start: 20110501
  8. HERCEPTIN [Concomitant]
     Indication: BREAST CANCER METASTATIC
     Dosage: 300 MG, EVERY 3 WEEKS
     Dates: start: 20110805
  9. ZOMETA [Concomitant]
     Indication: METASTASES TO BONE
     Dosage: UNK
     Dates: start: 20090401
  10. LAPATINIB [Concomitant]

REACTIONS (18)
  - NEUROPATHY PERIPHERAL [None]
  - NEOPLASM MALIGNANT [None]
  - BLOOD LACTATE DEHYDROGENASE INCREASED [None]
  - HEPATITIS CHOLESTATIC [None]
  - GAMMA-GLUTAMYLTRANSFERASE INCREASED [None]
  - BLOOD BILIRUBIN INCREASED [None]
  - HEPATIC LESION [None]
  - MALIGNANT PERITONEAL NEOPLASM [None]
  - NEOPLASM PROGRESSION [None]
  - ASCITES [None]
  - ALANINE AMINOTRANSFERASE INCREASED [None]
  - BILIRUBIN CONJUGATED INCREASED [None]
  - JAUNDICE [None]
  - RASH ERYTHEMATOUS [None]
  - RASH PRURITIC [None]
  - ASPARTATE AMINOTRANSFERASE INCREASED [None]
  - BLOOD ALKALINE PHOSPHATASE INCREASED [None]
  - ENDOCRINE NEOPLASM [None]
